FAERS Safety Report 22150628 (Version 2)
Quarter: 2023Q2

REPORT INFORMATION
  Report Type: Report from Study
  Country: AR (occurrence: AR)
  Receive Date: 20230329
  Receipt Date: 20230411
  Transmission Date: 20230722
  Serious: Yes (Hospitalization, Other)
  Sender: FDA-Public Use
  Company Number: AR-RECORDATI-2023001819

PATIENT

DRUGS (5)
  1. SIGNIFOR LAR [Suspect]
     Active Substance: PASIREOTIDE PAMOATE
     Indication: Acromegaly
     Dosage: 60 MILLIGRAM, EVERY 28 DAYS
     Route: 065
     Dates: start: 2019
  2. ROSUVASTATIN [Concomitant]
     Active Substance: ROSUVASTATIN
     Indication: Product used for unknown indication
     Dosage: UNK
  3. PREMEC [Concomitant]
     Indication: Product used for unknown indication
     Dosage: 5 MILLIGRAM
  4. DILCORAN [VALSARTAN] [Concomitant]
     Indication: Product used for unknown indication
     Dosage: 160 MILLIGRAM
  5. ASPIRIN [Concomitant]
     Active Substance: ASPIRIN
     Indication: Product used for unknown indication
     Dosage: UNK

REACTIONS (3)
  - Cerebrovascular accident [Recovered/Resolved]
  - Osteoarthritis [Not Recovered/Not Resolved]
  - Synovial cyst [Recovered/Resolved]

NARRATIVE: CASE EVENT DATE: 20220601
